FAERS Safety Report 7018268-4 (Version None)
Quarter: 2010Q3

REPORT INFORMATION
  Report Type: 
  Country: None (occurrence: None)
  Receive Date: 20100924
  Receipt Date: 20100913
  Transmission Date: 20110219
  Serious: Yes (Hospitalization)
  Sender: FDA-Public Use
  Company Number: 018715

PATIENT
  Age: 71 Year
  Sex: Female
  Weight: 62 kg

DRUGS (4)
  1. LORTAB [Suspect]
  2. LABETALOL HCL [Suspect]
  3. SUNITINIB MALATE [Suspect]
     Indication: RENAL CELL CARCINOMA
     Dosage: UNKNOWN DOSE ORAL
     Route: 048
     Dates: start: 20100704, end: 20100706
  4. LISINOPRIL [Suspect]

REACTIONS (9)
  - CONSTIPATION [None]
  - FATIGUE [None]
  - GENERAL PHYSICAL HEALTH DETERIORATION [None]
  - LYMPH NODE PALPABLE [None]
  - METASTASES TO LUNG [None]
  - PLATELET COUNT INCREASED [None]
  - PROTEINURIA [None]
  - RENAL CANCER METASTATIC [None]
  - VOMITING [None]
